FAERS Safety Report 14306988 (Version 1)
Quarter: 2017Q4

REPORT INFORMATION
  Report Type: Spontaneous
  Country: FR (occurrence: FR)
  Receive Date: 20171220
  Receipt Date: 20171220
  Transmission Date: 20180321
  Serious: Yes (Other)
  Sender: FDA-Public Use
  Company Number: FR-MERCK KGAA-2037453

PATIENT
  Age: 67 Year
  Sex: Female
  Weight: 100 kg

DRUGS (1)
  1. NOVOTHYROX [Suspect]
     Active Substance: LEVOTHYROXINE SODIUM
     Indication: THYROIDECTOMY
     Route: 048
     Dates: start: 201704

REACTIONS (8)
  - Fatigue [Recovering/Resolving]
  - Arthralgia [Not Recovered/Not Resolved]
  - Gait disturbance [Recovering/Resolving]
  - Weight increased [Not Recovered/Not Resolved]
  - Migraine [Not Recovered/Not Resolved]
  - Depressed mood [Not Recovered/Not Resolved]
  - Anger [Not Recovered/Not Resolved]
  - Muscle spasms [Not Recovered/Not Resolved]

NARRATIVE: CASE EVENT DATE: 201706
